FAERS Safety Report 11748994 (Version 3)
Quarter: 2016Q1

REPORT INFORMATION
  Report Type: Spontaneous
  Country: US (occurrence: US)
  Receive Date: 20151118
  Receipt Date: 20160310
  Transmission Date: 20160525
  Serious: Yes (Other)
  Sender: FDA-Public Use
  Company Number: PHEH2015US023065

PATIENT
  Age: 9 Year
  Sex: Female
  Weight: 24.7 kg

DRUGS (5)
  1. EXJADE [Suspect]
     Active Substance: DEFERASIROX
     Dosage: 750 MG, QD
     Route: 048
  2. EXJADE [Suspect]
     Active Substance: DEFERASIROX
     Dosage: 750 MG, QD
     Route: 048
     Dates: start: 20150818
  3. EXJADE [Suspect]
     Active Substance: DEFERASIROX
     Indication: THALASSAEMIA BETA
     Dosage: UNK UNK, QD
     Route: 048
     Dates: start: 20141201
  4. EXJADE [Suspect]
     Active Substance: DEFERASIROX
     Dosage: UNK UNK, QD
     Route: 048
     Dates: start: 20150212, end: 20150601
  5. EXJADE [Suspect]
     Active Substance: DEFERASIROX
     Dosage: 500 MG, QD
     Route: 048

REACTIONS (16)
  - Rash [Recovered/Resolved]
  - Serum ferritin increased [Unknown]
  - Hepatocellular injury [Unknown]
  - Alanine aminotransferase increased [Unknown]
  - Aspartate aminotransferase increased [Unknown]
  - White blood cell count increased [Unknown]
  - Blood lactate dehydrogenase increased [Recovered/Resolved]
  - Red blood cell count decreased [Unknown]
  - Heart rate increased [Unknown]
  - Blood creatinine increased [Recovered/Resolved]
  - Haemosiderosis [Unknown]
  - Blood bilirubin increased [Unknown]
  - Alanine aminotransferase increased [Recovered/Resolved]
  - Haemoglobin decreased [Unknown]
  - Hepatitis A antibody positive [Unknown]
  - Mean platelet volume increased [Unknown]

NARRATIVE: CASE EVENT DATE: 20141201
